FAERS Safety Report 8846791 (Version 1)
Quarter: 2012Q4

REPORT INFORMATION
  Report Type: Spontaneous
  Country: US (occurrence: None)
  Receive Date: 20121016
  Receipt Date: 20121016
  Transmission Date: 20130627
  Serious: Yes (Hospitalization, Other)
  Sender: FDA-Public Use
  Company Number: 2012SGN00437

PATIENT
  Age: 44 Year
  Sex: Female

DRUGS (2)
  1. ADCETRIS [Suspect]
     Indication: HODGKIN^S LYMPHOMA
     Dates: start: 201209
  2. INSULIN (INSULIN) [Concomitant]

REACTIONS (3)
  - Ketoacidosis [None]
  - Blood glucose increased [None]
  - Diarrhoea [None]
